FAERS Safety Report 8957220 (Version 1)
Quarter: 2012Q4

REPORT INFORMATION
  Report Type: 
  Country: US (occurrence: US)
  Receive Date: 20121211
  Receipt Date: 20121211
  Transmission Date: 20130627
  Serious: Yes (Death)
  Sender: FDA-Public Use
  Company Number: US-INCYTE CORPORATION-2012IN002542

PATIENT
  Sex: Male

DRUGS (10)
  1. JAKAFI [Suspect]
     Indication: MYELOFIBROSIS
     Dosage: 5 mg, bid
     Route: 048
  2. SIMVASTATIN [Concomitant]
     Dosage: 10 mg, UNK
  3. PLAVIX [Concomitant]
     Dosage: 75 mg, UNK
  4. METOPROLOL [Concomitant]
     Dosage: 100 mg, UNK
  5. LISINOPRIL [Concomitant]
     Dosage: 10 UNK, UNK
  6. LEVOTHYROXINE SODIUM [Concomitant]
     Dosage: 137 mcg, UNK
  7. GLIPIZIDE [Concomitant]
     Dosage: 5 mg, UNK
  8. FENOFIBRATE [Concomitant]
     Dosage: 134 mg, UNK
  9. ASPIRIN [Concomitant]
     Dosage: 81 mg, UNK
  10. PLETAL [Concomitant]
     Dosage: 50 mg, UNK

REACTIONS (1)
  - Death [Fatal]
